FAERS Safety Report 10098968 (Version 1)
Quarter: 2014Q2

REPORT INFORMATION
  Report Type: Spontaneous
  Country: SA (occurrence: SA)
  Receive Date: 20140423
  Receipt Date: 20140423
  Transmission Date: 20141212
  Serious: Yes (Life-Threatening, Hospitalization, Disabling, Other)
  Sender: FDA-Public Use
  Company Number: SA-ELI_LILLY_AND_COMPANY-SA201404006492

PATIENT
  Age: 32 Year
  Sex: Female
  Weight: 75 kg

DRUGS (2)
  1. ZYPREXA [Suspect]
     Indication: AGITATION
     Dosage: 10 MG, UNKNOWN
     Route: 030
     Dates: start: 20140416
  2. DEPAKENE                           /00228502/ [Concomitant]
     Indication: PSYCHOTIC DISORDER
     Dosage: 200 MG, BID
     Route: 065

REACTIONS (2)
  - Hemiparesis [Not Recovered/Not Resolved]
  - Blood glucose increased [Unknown]
